FAERS Safety Report 11644358 (Version 1)
Quarter: 2015Q4

REPORT INFORMATION
  Report Type: Report from Study
  Country: CA (occurrence: CA)
  Receive Date: 20151020
  Receipt Date: 20151020
  Transmission Date: 20160304
  Serious: Yes (Death)
  Sender: FDA-Public Use
  Company Number: PHHY2015CA134846

PATIENT
  Age: 61 Year
  Sex: Female

DRUGS (2)
  1. SANDOSTATIN [Suspect]
     Active Substance: OCTREOTIDE ACETATE
     Indication: ENDOMETRIAL DISORDER
     Dosage: UNK OT, BID (TO CONTINUE FOR FEW WEEKS POST FIRST LAR)
     Route: 058
     Dates: start: 201509, end: 20151002
  2. SANDOSTATIN LAR DEPOT [Suspect]
     Active Substance: OCTREOTIDE ACETATE
     Indication: ENDOMETRIAL DISORDER
     Dosage: 30 MG, QMO
     Route: 030
     Dates: start: 20150918, end: 20150918

REACTIONS (2)
  - Death [Fatal]
  - Off label use [Unknown]

NARRATIVE: CASE EVENT DATE: 20151013
